FAERS Safety Report 6416506-X (Version None)
Quarter: 2009Q4

REPORT INFORMATION
  Report Type: 
  Country: None (occurrence: None)
  Receive Date: 20091027
  Receipt Date: 20091014
  Transmission Date: 20100525
  Serious: Yes (Other)
  Sender: FDA-Public Use
  Company Number: PHHY2009ES44457

PATIENT
  Age: 78 Year
  Sex: Female

DRUGS (3)
  1. LESCOL [Suspect]
     Indication: DYSLIPIDAEMIA
     Dosage: 80 MG, UNK
     Route: 048
     Dates: start: 20070101, end: 20081121
  2. ADOLONTA [Suspect]
     Indication: BONE PAIN
     Dosage: UNK
     Route: 048
     Dates: start: 20081107, end: 20081121
  3. ENANTYUM [Suspect]
     Indication: BONE PAIN
     Dosage: UNK
     Route: 048
     Dates: start: 20081107, end: 20081121

REACTIONS (2)
  - MUSCULAR WEAKNESS [None]
  - RENAL FAILURE ACUTE [None]
